FAERS Safety Report 4391644-4 (Version None)
Quarter: 2004Q3

REPORT INFORMATION
  Report Type: 
  Country: None (occurrence: None)
  Receive Date: 20040701
  Receipt Date: 20040614
  Transmission Date: 20050211
  Serious: Yes (Other)
  Sender: FDA-Public Use
  Company Number: USA040670098

PATIENT
  Sex: Female

DRUGS (2)
  1. ZYPREXA [Suspect]
     Indication: AGITATION
     Dosage: 5 MG/2 DAY
     Dates: start: 20020101
  2. ZYPREXA [Suspect]
     Indication: MANIA
     Dosage: 5 MG/2 DAY
     Dates: start: 20020101

REACTIONS (12)
  - AGITATION [None]
  - CHEST PAIN [None]
  - DIZZINESS [None]
  - EJECTION FRACTION DECREASED [None]
  - EYE DISORDER [None]
  - LEFT VENTRICULAR FAILURE [None]
  - MANIA [None]
  - NAUSEA [None]
  - PSYCHOTIC DISORDER [None]
  - SOMNOLENCE [None]
  - TACHYCARDIA [None]
  - VOMITING [None]
